FAERS Safety Report 5612308-2 (Version None)
Quarter: 2008Q1

REPORT INFORMATION
  Report Type: 
  Country: None (occurrence: None)
  Receive Date: 20080204
  Receipt Date: 20080130
  Transmission Date: 20080703
  Serious: Yes (Hospitalization)
  Sender: FDA-Public Use
  Company Number: US-ASTRAZENECA-2008UW01259

PATIENT
  Sex: Female

DRUGS (14)
  1. SYMBICORT [Suspect]
     Indication: CHRONIC OBSTRUCTIVE PULMONARY DISEASE
     Dosage: 2 INHALATIONS TWICE DAILY
     Route: 055
  2. VITAMIN CAP [Concomitant]
  3. FUROSEMIDE [Concomitant]
  4. POTASSIUM TABLETS [Concomitant]
  5. ASPIRIN [Concomitant]
  6. AMARYL [Concomitant]
  7. ALTACE [Concomitant]
  8. CLONIDINE [Concomitant]
  9. CADUET [Concomitant]
  10. COZAAR [Concomitant]
  11. ALBUTEROL [Concomitant]
     Route: 055
  12. VICODIN [Concomitant]
  13. ISOSORBIDE MONONITRATE [Concomitant]
  14. PROTONIX [Concomitant]

REACTIONS (1)
  - ANAPHYLACTIC REACTION [None]
